FAERS Safety Report 19237285 (Version 2)
Quarter: 2021Q3

REPORT INFORMATION
  Report Type: Other
  Country: US (occurrence: US)
  Receive Date: 20210510
  Receipt Date: 20210719
  Transmission Date: 20211014
  Serious: Yes (Hospitalization, Other)
  Sender: FDA-Public Use
  Company Number: US-INTERCEPT-PM2021001434

PATIENT
  Age: 57 Year
  Sex: Female

DRUGS (17)
  1. METHYLPRED [Concomitant]
     Active Substance: METHYLPREDNISOLONE
  2. VITAMIN D [VITAMIN D NOS] [Concomitant]
     Active Substance: VITAMIN D NOS
  3. ALBUTEROL HFA [Concomitant]
     Active Substance: ALBUTEROL SULFATE
  4. CLOPIDOGREL [Concomitant]
     Active Substance: CLOPIDOGREL BISULFATE
  5. VITAMIN D3 [Concomitant]
     Active Substance: CHOLECALCIFEROL
  6. URSODIOL. [Concomitant]
     Active Substance: URSODIOL
  7. AZITHROMYCIN ANHYDROUS. [Concomitant]
     Active Substance: AZITHROMYCIN ANHYDROUS
  8. PANTOPRAZOLE [Concomitant]
     Active Substance: PANTOPRAZOLE
  9. SUCRALFATE. [Concomitant]
     Active Substance: SUCRALFATE
  10. LIOTHYRONINE [Concomitant]
     Active Substance: LIOTHYRONINE
  11. AMITIZA [Concomitant]
     Active Substance: LUBIPROSTONE
  12. ASPIRIN [ACETYLSALICYLIC ACID] [Concomitant]
     Active Substance: ASPIRIN
  13. OCALIVA [Suspect]
     Active Substance: OBETICHOLIC ACID
     Indication: PRIMARY BILIARY CHOLANGITIS
     Dosage: 5 MILLIGRAM, QD
     Route: 048
     Dates: start: 20170417
  14. BENZONATATE. [Concomitant]
     Active Substance: BENZONATATE
  15. ERYTHROMYCIN. [Concomitant]
     Active Substance: ERYTHROMYCIN
  16. EZETIMIBE. [Concomitant]
     Active Substance: EZETIMIBE
  17. FAMOTIDINE. [Concomitant]
     Active Substance: FAMOTIDINE

REACTIONS (9)
  - Hemiparesis [Unknown]
  - Product dose omission issue [Not Recovered/Not Resolved]
  - Hypoaesthesia [Unknown]
  - Optic nerve injury [Not Recovered/Not Resolved]
  - Speech rehabilitation [Unknown]
  - Haemorrhagic stroke [Not Recovered/Not Resolved]
  - Thrombosis [Unknown]
  - Blindness unilateral [Not Recovered/Not Resolved]
  - Physiotherapy [Unknown]

NARRATIVE: CASE EVENT DATE: 2021
